FAERS Safety Report 16770247 (Version 1)
Quarter: 2019Q3

REPORT INFORMATION
  Report Type: Spontaneous
  Country: US (occurrence: US)
  Receive Date: 20190904
  Receipt Date: 20190904
  Transmission Date: 20191005
  Serious: No
  Sender: FDA-Public Use
  Company Number: US-LUPIN PHARMACEUTICALS INC.-2018-05446

PATIENT
  Sex: Female

DRUGS (1)
  1. AMLODIPINE BESYLATE TABLETS USP, 10 MG [Suspect]
     Active Substance: AMLODIPINE BESYLATE
     Indication: BLOOD PRESSURE ABNORMAL
     Dosage: UNK
     Route: 065

REACTIONS (2)
  - Peripheral swelling [Unknown]
  - Joint swelling [Unknown]
